FAERS Safety Report 24808158 (Version 1)
Quarter: 2025Q1

REPORT INFORMATION
  Report Type: Spontaneous
  Country: US (occurrence: US)
  Receive Date: 20250106
  Receipt Date: 20250106
  Transmission Date: 20250409
  Serious: Yes (Hospitalization, Other)
  Sender: BRISTOL-MYERS SQUIBB COMPANY
  Company Number: US-BRISTOL-MYERS SQUIBB COMPANY-2025-000337

PATIENT
  Age: 78 Year
  Sex: Female

DRUGS (2)
  1. NIVOLUMAB [Suspect]
     Active Substance: NIVOLUMAB
     Indication: Mesothelioma
  2. IPILIMUMAB [Suspect]
     Active Substance: IPILIMUMAB
     Indication: Mesothelioma

REACTIONS (5)
  - Immune-mediated enterocolitis [Recovered/Resolved]
  - Immune-mediated lung disease [Recovering/Resolving]
  - Immune-mediated mucositis [Unknown]
  - Skin toxicity [Unknown]
  - Immune-mediated vasculitis [Unknown]
